FAERS Safety Report 15814709 (Version 2)
Quarter: 2019Q1

REPORT INFORMATION
  Report Type: Report from Study
  Country: US (occurrence: US)
  Receive Date: 20190111
  Receipt Date: 20190211
  Transmission Date: 20190417
  Serious: Yes (Hospitalization)
  Sender: FDA-Public Use
  Company Number: US-ACTELION-A-NJ2019-184740

PATIENT
  Age: 79 Year
  Sex: Female

DRUGS (19)
  1. LISINOPRIL. [Concomitant]
     Active Substance: LISINOPRIL
  2. NEXIUM [Concomitant]
     Active Substance: ESOMEPRAZOLE MAGNESIUM
  3. FUROSEMIDE. [Concomitant]
     Active Substance: FUROSEMIDE
  4. AMLODIPINE BESYLATE. [Concomitant]
     Active Substance: AMLODIPINE BESYLATE
  5. PROMETHAZINE - CODEINE [Concomitant]
     Active Substance: CODEINE\PROMETHAZINE
  6. DOXYCYCLINE HYCLATE. [Concomitant]
     Active Substance: DOXYCYCLINE HYCLATE
  7. EUFLEXXA [Concomitant]
     Active Substance: HYALURONATE SODIUM
  8. MIRTAZAPINE. [Concomitant]
     Active Substance: MIRTAZAPINE
  9. LEVOTHYROXINE. [Concomitant]
     Active Substance: LEVOTHYROXINE
  10. HYDROCODONE BITARTRATE AND ACETAMINOPHEN [Concomitant]
     Active Substance: ACETAMINOPHEN\HYDROCODONE BITARTRATE
  11. PENTASA [Concomitant]
     Active Substance: MESALAMINE
  12. TRACLEER [Suspect]
     Active Substance: BOSENTAN
     Indication: COR PULMONALE CHRONIC
     Dosage: 125 MG, BID
     Route: 048
     Dates: start: 20130215
  13. WARFARIN [Concomitant]
     Active Substance: WARFARIN
  14. TRAZODONE [Concomitant]
     Active Substance: TRAZODONE HYDROCHLORIDE
  15. MESALAMINE. [Concomitant]
     Active Substance: MESALAMINE
  16. KEPPRA [Concomitant]
     Active Substance: LEVETIRACETAM
  17. ALPRAZOLAM. [Concomitant]
     Active Substance: ALPRAZOLAM
  18. BUTALBITAL AND ACETAMINOPHEN [Concomitant]
     Active Substance: ACETAMINOPHEN\BUTALBITAL
  19. FENTANYL. [Concomitant]
     Active Substance: FENTANYL

REACTIONS (2)
  - Seizure [Unknown]
  - Product dose omission [Unknown]
